FAERS Safety Report 6480473-3 (Version None)
Quarter: 2009Q4

REPORT INFORMATION
  Report Type: 
  Country: None (occurrence: None)
  Receive Date: 20091208
  Receipt Date: 20091130
  Transmission Date: 20100525
  Serious: Yes (Hospitalization)
  Sender: FDA-Public Use
  Company Number: JP-BAYER-200914039BYL

PATIENT
  Age: 54 Year
  Sex: Male
  Weight: 80 kg

DRUGS (11)
  1. NEXAVAR [Suspect]
     Indication: HEPATIC NEOPLASM MALIGNANT
     Dosage: UNIT DOSE: 200 MG
     Route: 048
     Dates: start: 20091009, end: 20091020
  2. OMEPRAL [Concomitant]
     Indication: GASTRITIS PROPHYLAXIS
     Dosage: SINCE BEFORE ADMINISTRATION
     Route: 048
  3. LENDORMIN D [Concomitant]
     Indication: PROPHYLAXIS
     Dosage: SINCE BEFORE ADMINISTRATION
     Route: 048
  4. BIOFERMIN [Concomitant]
     Indication: DISBACTERIOSIS
     Dosage: INTESTINAL BACTERIA FLORA DISTURBANCE
     Route: 048
  5. URSO 250 [Concomitant]
     Dosage: INTESTINAL BACTERIA FLORA DISTURBANCE
     Route: 048
  6. STROCAIN [Concomitant]
     Dosage: INTESTINAL BACTERIA FLORA DISTURBANCE
     Route: 048
  7. MAALOX [Concomitant]
     Indication: GASTRITIS PROPHYLAXIS
     Dosage: INTESTINAL BACTERIA FLORA DISTURBANCE
     Route: 048
  8. NOVAMIN [Concomitant]
     Indication: PROPHYLAXIS OF NAUSEA AND VOMITING
     Dosage: SINCE BEFORE ADMINISTRATION
     Route: 048
  9. UREPEARL [Concomitant]
     Indication: PROPHYLAXIS
     Dosage: SINCE BEFORE ADMINISTRATION
     Route: 061
  10. HIRUDOID [Concomitant]
     Indication: PROPHYLAXIS
     Route: 061
  11. NEOPHAGEN C [Concomitant]
     Route: 042
     Dates: start: 20091009, end: 20091019

REACTIONS (8)
  - ASTHENIA [None]
  - BLOOD CREATINE PHOSPHOKINASE INCREASED [None]
  - DECREASED APPETITE [None]
  - FATIGUE [None]
  - HEPATIC ENCEPHALOPATHY [None]
  - HEPATIC FUNCTION ABNORMAL [None]
  - NAUSEA [None]
  - PALMAR-PLANTAR ERYTHRODYSAESTHESIA SYNDROME [None]
